FAERS Safety Report 5946056-6 (Version None)
Quarter: 2008Q4

REPORT INFORMATION
  Report Type: 
  Country: None (occurrence: None)
  Receive Date: 20081106
  Receipt Date: 20081106
  Transmission Date: 20090506
  Serious: No
  Sender: FDA-Public Use
  Company Number: None

PATIENT
  Age: 64 Year
  Sex: Male
  Weight: 100.7 kg

DRUGS (1)
  1. VARENICLINE [Suspect]
     Dates: start: 20071114, end: 20071114

REACTIONS (1)
  - PANIC ATTACK [None]
